FAERS Safety Report 6692038-9 (Version None)
Quarter: 2010Q2

REPORT INFORMATION
  Report Type: 
  Country: None (occurrence: None)
  Receive Date: 20100422
  Receipt Date: 20100414
  Transmission Date: 20101027
  Serious: Yes (Hospitalization)
  Sender: FDA-Public Use
  Company Number: CA-JNJFOC-20100210615

PATIENT
  Sex: Male

DRUGS (4)
  1. USTEKINUMAB [Suspect]
     Indication: PSORIASIS
     Route: 058
  2. USTEKINUMAB [Suspect]
     Route: 058
  3. PLACEBO [Suspect]
     Indication: PSORIASIS
     Route: 058
  4. TYLENOL-500 [Concomitant]
     Indication: HEADACHE
     Route: 048

REACTIONS (1)
  - TOOTH ABSCESS [None]
